FAERS Safety Report 6152192-4 (Version None)
Quarter: 2009Q2

REPORT INFORMATION
  Report Type: 
  Country: None (occurrence: None)
  Receive Date: 20090410
  Receipt Date: 20081111
  Transmission Date: 20091009
  Serious: No
  Sender: FDA-Public Use
  Company Number: US-ASTRAZENECA-2008UW25231

PATIENT
  Age: 68 Year
  Sex: Male
  Weight: 81.6 kg

DRUGS (1)
  1. TENORMIN [Suspect]
     Indication: HYPERTENSION
     Route: 048
     Dates: start: 20080501

REACTIONS (2)
  - ALOPECIA [None]
  - DRUG INEFFECTIVE [None]
